FAERS Safety Report 12299197 (Version 2)
Quarter: 2016Q3

REPORT INFORMATION
  Report Type: Report from Study
  Country: US (occurrence: US)
  Receive Date: 20160425
  Receipt Date: 20160726
  Transmission Date: 20161109
  Serious: Yes (Hospitalization, Other)
  Sender: FDA-Public Use
  Company Number: PHEH2016US009672

PATIENT
  Sex: Male
  Weight: 107.9 kg

DRUGS (14)
  1. WARFARIN [Concomitant]
     Active Substance: WARFARIN
     Dosage: 6 MG, Q48H (TUESDAY, THURSDAY AND SATURDAY)
     Route: 048
  2. LEVOTHYROXINE. [Concomitant]
     Active Substance: LEVOTHYROXINE
     Indication: THYROID DISORDER
     Dosage: 1 DF, QD
     Route: 048
  3. GLIPIZIDE. [Suspect]
     Active Substance: GLIPIZIDE
     Dosage: 5 MG, QD
     Route: 048
  4. ALLOPURINOL. [Concomitant]
     Active Substance: ALLOPURINOL
     Indication: GOUT
     Dosage: 1000 MG, QD
     Route: 048
     Dates: start: 1983
  5. FUROSEMIDE. [Concomitant]
     Active Substance: FUROSEMIDE
     Indication: FLUID RETENTION
     Dosage: 40 MG, BID
     Route: 048
  6. GLIPIZIDE. [Suspect]
     Active Substance: GLIPIZIDE
     Indication: DIABETES MELLITUS
     Dosage: UNK UNK, QD
     Route: 048
     Dates: start: 20121218
  7. CARVEDILOL. [Concomitant]
     Active Substance: CARVEDILOL
     Indication: CARDIAC DISORDER
     Dosage: 6.25 MG, BID
     Route: 048
  8. ZETIA [Concomitant]
     Active Substance: EZETIMIBE
     Indication: BLOOD CHOLESTEROL
     Dosage: 1 DF, QD
     Route: 048
  9. BUSPIRONE [Concomitant]
     Active Substance: BUSPIRONE HYDROCHLORIDE
     Indication: ANXIETY
     Dosage: 1 DF, BID
     Route: 048
     Dates: start: 2015
  10. ENTRESTO [Suspect]
     Active Substance: SACUBITRIL\VALSARTAN
     Indication: PRODUCT USED FOR UNKNOWN INDICATION
     Dosage: 100 MG, BID
     Route: 048
  11. LOSARTAN. [Concomitant]
     Active Substance: LOSARTAN
     Indication: BLOOD PRESSURE MEASUREMENT
     Dosage: 25 MG, QD
     Route: 048
  12. LASIX [Concomitant]
     Active Substance: FUROSEMIDE
     Indication: PRODUCT USED FOR UNKNOWN INDICATION
     Route: 065
  13. WARFARIN [Concomitant]
     Active Substance: WARFARIN
     Indication: PRODUCT USED FOR UNKNOWN INDICATION
     Dosage: 3 MG, Q48H (ON SUNDAY, MONDAY, WEDNESDAY AND FRIDAY)
     Route: 048
  14. GLICLAZIDE [Concomitant]
     Active Substance: GLICLAZIDE
     Indication: PRODUCT USED FOR UNKNOWN INDICATION
     Route: 065

REACTIONS (18)
  - Abdominal pain [Unknown]
  - Vision blurred [Unknown]
  - Oral mucosal blistering [Unknown]
  - Nausea [Not Recovered/Not Resolved]
  - Arrhythmia [Unknown]
  - Loss of consciousness [Unknown]
  - Swelling [Unknown]
  - Faeces discoloured [Unknown]
  - Device malfunction [Unknown]
  - Contusion [Unknown]
  - Blood urine present [Unknown]
  - Weight increased [Unknown]
  - Syncope [Unknown]
  - Dyspnoea [Unknown]
  - Fall [Unknown]
  - Drug intolerance [Unknown]
  - Fluid retention [Unknown]
  - Vomiting [Not Recovered/Not Resolved]
